FAERS Safety Report 10692948 (Version 1)
Quarter: 2015Q1

REPORT INFORMATION
  Report Type: Spontaneous
  Country: US (occurrence: None)
  Receive Date: 20150105
  Receipt Date: 20150105
  Transmission Date: 20150720
  Serious: Yes (Other)
  Sender: FDA-Public Use
  Company Number: None

PATIENT
  Age: 28 Year
  Sex: Female
  Weight: 86.18 kg

DRUGS (1)
  1. DIFLUCAN [Suspect]
     Active Substance: FLUCONAZOLE
     Indication: INFECTION
     Route: 048

REACTIONS (7)
  - Erythema [None]
  - Peripheral swelling [None]
  - Nasal oedema [None]
  - Pruritus [None]
  - Lip swelling [None]
  - Eye swelling [None]
  - Burning sensation [None]

NARRATIVE: CASE EVENT DATE: 20061025
